FAERS Safety Report 10202430 (Version 2)
Quarter: 2014Q3

REPORT INFORMATION
  Report Type: Report from Study
  Country: US (occurrence: US)
  Receive Date: 20140528
  Receipt Date: 20140718
  Transmission Date: 20150326
  Serious: Yes (Other)
  Sender: FDA-Public Use
  Company Number: US-ELI_LILLY_AND_COMPANY-US201405005573

PATIENT
  Age: 62 Year
  Sex: Male
  Weight: 116.1 kg

DRUGS (15)
  1. OLANZAPINE LONG-ACTING IM [Suspect]
     Active Substance: OLANZAPINE PAMOATE
     Dosage: 300 MG, OTHER
     Route: 030
     Dates: start: 20130620, end: 20140425
  2. OLANZAPINE LONG-ACTING IM [Suspect]
     Active Substance: OLANZAPINE PAMOATE
     Dosage: 405 MG, OTHER
     Route: 030
     Dates: start: 20130523, end: 20130523
  3. RISPERDAL [Concomitant]
     Active Substance: RISPERIDONE
     Dosage: 4 MG, UNK
  4. OLANZAPINE LONG-ACTING IM [Suspect]
     Active Substance: OLANZAPINE PAMOATE
     Dosage: 300 MG, OTHER
     Route: 030
     Dates: start: 20120911, end: 20121228
  5. TRIHEXYPHENIDYL [Concomitant]
     Active Substance: TRIHEXYPHENIDYL
     Dosage: 2 DF, BID
  6. OLANZAPINE LONG-ACTING IM [Suspect]
     Active Substance: OLANZAPINE PAMOATE
     Dosage: 300 MG, OTHER
     Route: 030
     Dates: start: 20120203, end: 20120203
  7. OLANZAPINE LONG-ACTING IM [Suspect]
     Active Substance: OLANZAPINE PAMOATE
     Dosage: 405 MG, OTHER
     Route: 030
     Dates: start: 20120224, end: 20120821
  8. OLANZAPINE LONG-ACTING IM [Suspect]
     Active Substance: OLANZAPINE PAMOATE
     Dosage: 405 MG, OTHER
     Route: 030
     Dates: start: 20130125, end: 20130125
  9. OLANZAPINE LONG-ACTING IM [Suspect]
     Active Substance: OLANZAPINE PAMOATE
     Dosage: 300 MG, OTHER
     Route: 030
     Dates: start: 20140516, end: 20140516
  10. DEPOCYTE [Concomitant]
     Active Substance: CYTARABINE
     Dosage: 500 MG, TID
  11. OLANZAPINE LONG-ACTING IM [Suspect]
     Active Substance: OLANZAPINE PAMOATE
     Dosage: 405 MG, OTHER
     Route: 030
     Dates: start: 20130214, end: 20130214
  12. CYMBALTA [Concomitant]
     Active Substance: DULOXETINE HYDROCHLORIDE
     Dosage: 30 MG, EACH EVENING
  13. INSULIN [Concomitant]
     Active Substance: INSULIN NOS
     Dosage: UNK, EACH EVENING
  14. OLANZAPINE LONG-ACTING IM [Suspect]
     Active Substance: OLANZAPINE PAMOATE
     Indication: SCHIZOPHRENIA
     Dosage: 210 MG, OTHER
     Route: 030
     Dates: start: 20111209, end: 20120106
  15. OLANZAPINE LONG-ACTING IM [Suspect]
     Active Substance: OLANZAPINE PAMOATE
     Dosage: 300 MG, OTHER
     Route: 030
     Dates: start: 20130321, end: 20130502

REACTIONS (9)
  - Disorientation [Recovered/Resolved]
  - Dizziness [Recovered/Resolved]
  - Fatigue [Recovered/Resolved]
  - Asthenia [Recovered/Resolved]
  - Wheezing [Recovered/Resolved]
  - Anxiety [Recovered/Resolved with Sequelae]
  - Ataxia [Recovered/Resolved]
  - Respiratory depression [Recovered/Resolved]
  - Tachycardia [Recovered/Resolved]

NARRATIVE: CASE EVENT DATE: 20140516
